FAERS Safety Report 11854798 (Version 1)
Quarter: 2015Q4

REPORT INFORMATION
  Report Type: Spontaneous
  Country: PH (occurrence: PH)
  Receive Date: 20151221
  Receipt Date: 20151221
  Transmission Date: 20160305
  Serious: Yes (Disabling)
  Sender: FDA-Public Use
  Company Number: PH-009507513-1512PHL008932

PATIENT
  Age: 54 Year
  Sex: Female

DRUGS (3)
  1. FORXIGA [Concomitant]
     Active Substance: DAPAGLIFLOZIN
     Dosage: UNK
     Dates: start: 2015
  2. METFORMIN [Concomitant]
     Active Substance: METFORMIN HYDROCHLORIDE
     Dosage: UNK
     Dates: start: 2015
  3. JANUVIA [Suspect]
     Active Substance: SITAGLIPTIN PHOSPHATE
     Indication: DIABETES MELLITUS
     Dosage: 1 TABLET, QD
     Route: 048
     Dates: start: 2015

REACTIONS (7)
  - Activities of daily living impaired [Unknown]
  - Pain [Unknown]
  - Musculoskeletal discomfort [Unknown]
  - Frustration [Unknown]
  - Periarthritis [Unknown]
  - Movement disorder [Unknown]
  - Blood glucose increased [Unknown]

NARRATIVE: CASE EVENT DATE: 2015
